FAERS Safety Report 5940543-2 (Version None)
Quarter: 2008Q4

REPORT INFORMATION
  Report Type: 
  Country: None (occurrence: None)
  Receive Date: 20081104
  Receipt Date: 20081028
  Transmission Date: 20090506
  Serious: Yes (Hospitalization, Other)
  Sender: FDA-Public Use
  Company Number: US-MERCK-0805USA00908

PATIENT
  Age: 58 Year
  Sex: Female

DRUGS (4)
  1. FOSAMAX [Suspect]
     Indication: OSTEOPOROSIS PROPHYLAXIS
     Route: 048
     Dates: start: 20010503, end: 20061114
  2. FOSAMAX [Suspect]
     Route: 048
     Dates: start: 20010301, end: 20010501
  3. FOSAMAX [Suspect]
     Route: 048
  4. [THERAPY UNSPECIFIED] [Concomitant]
     Indication: DIABETES MELLITUS
     Route: 065
     Dates: start: 19980101

REACTIONS (28)
  - ANAEMIA [None]
  - ARTHRITIS [None]
  - ARTHROPATHY [None]
  - CEREBROVASCULAR ACCIDENT [None]
  - CHEST PAIN [None]
  - CHRONIC OBSTRUCTIVE PULMONARY DISEASE [None]
  - CORONARY ARTERY DISEASE [None]
  - DEPRESSION [None]
  - DIABETIC NEUROPATHY [None]
  - DIVERTICULITIS [None]
  - DYSPEPSIA [None]
  - EMOTIONAL DISTRESS [None]
  - FALL [None]
  - FLUID RETENTION [None]
  - GASTROENTERITIS [None]
  - GOUTY ARTHRITIS [None]
  - HYPERLIPIDAEMIA [None]
  - HYPERSENSITIVITY [None]
  - HYPOGLYCAEMIA [None]
  - MASTICATION DISORDER [None]
  - OSTEONECROSIS [None]
  - POLYP [None]
  - RESORPTION BONE INCREASED [None]
  - SYNCOPE [None]
  - TOOTH ABSCESS [None]
  - TOOTH DISORDER [None]
  - TRANSIENT ISCHAEMIC ATTACK [None]
  - TRAUMATIC HAEMATOMA [None]
